FAERS Safety Report 17835195 (Version 1)
Quarter: 2020Q2

REPORT INFORMATION
  Report Type: Spontaneous
  Country: US (occurrence: US)
  Receive Date: 20200528
  Receipt Date: 20200528
  Transmission Date: 20200714
  Serious: No
  Sender: FDA-Public Use
  Company Number: US-AKRON, INC.-2084265

PATIENT
  Sex: Female

DRUGS (1)
  1. KETOTIFEN FUMARATE OPHTHALMIC SOLUTION [Suspect]
     Active Substance: KETOTIFEN FUMARATE
     Route: 047
     Dates: start: 202001

REACTIONS (2)
  - Vision blurred [Unknown]
  - Ocular hyperaemia [Unknown]
